FAERS Safety Report 10574656 (Version 3)
Quarter: 2015Q1

REPORT INFORMATION
  Report Type: Spontaneous
  Country: US (occurrence: US)
  Receive Date: 20141110
  Receipt Date: 20150109
  Transmission Date: 20150720
  Serious: No
  Sender: FDA-Public Use
  Company Number: US-PFIZER INC-2014304960

PATIENT
  Age: 81 Year
  Sex: Female

DRUGS (5)
  1. AROMASIN [Suspect]
     Active Substance: EXEMESTANE
     Indication: RECURRENT CANCER
  2. CALCIUM WITH D [Concomitant]
     Active Substance: CALCIUM\VITAMIN D
     Dosage: 600 IU, UNK
     Dates: start: 201408
  3. WARFARIN [Concomitant]
     Active Substance: WARFARIN
  4. XGEVA [Concomitant]
     Active Substance: DENOSUMAB
     Indication: RECURRENT CANCER
     Dosage: 120 MG, UNK
     Dates: start: 201408
  5. AROMASIN [Suspect]
     Active Substance: EXEMESTANE
     Indication: BONE CANCER
     Dosage: 25 MG, DAILY (1 PILL DAILY AFTER MEALS)
     Dates: start: 201408

REACTIONS (4)
  - Headache [Not Recovered/Not Resolved]
  - Product use issue [Unknown]
  - Dizziness [Not Recovered/Not Resolved]
  - Fatigue [Not Recovered/Not Resolved]
